FAERS Safety Report 24027107 (Version 1)
Quarter: 2024Q2

REPORT INFORMATION
  Report Type: Spontaneous
  Country: US (occurrence: US)
  Receive Date: 20240628
  Receipt Date: 20240628
  Transmission Date: 20240715
  Serious: No
  Sender: FDA-Public Use
  Company Number: US-BRISTOL-MYERS SQUIBB COMPANY-2024-101554

PATIENT
  Age: 84 Year
  Sex: Male

DRUGS (5)
  1. ELIQUIS [Interacting]
     Active Substance: APIXABAN
     Indication: Atrial fibrillation
     Route: 048
  2. ENZALUTAMIDE [Interacting]
     Active Substance: ENZALUTAMIDE
     Indication: Prostate cancer
     Dosage: 120 MG, ONCE DAILY (THREE 40MG TABLETS)
     Route: 048
     Dates: start: 2022, end: 202312
  3. ENZALUTAMIDE [Interacting]
     Active Substance: ENZALUTAMIDE
     Dosage: 120 MG, ONCE DAILY (THREE 40MG TABLETS)
     Route: 048
     Dates: start: 202312
  4. XGEVA [Concomitant]
     Active Substance: DENOSUMAB
     Indication: Bone disorder
  5. ELIGARD [Concomitant]
     Active Substance: LEUPROLIDE ACETATE
     Indication: Blood testosterone increased

REACTIONS (4)
  - Blood pressure increased [Recovering/Resolving]
  - Dyspnoea [Not Recovered/Not Resolved]
  - Heart rate increased [Recovering/Resolving]
  - Drug interaction [Unknown]

NARRATIVE: CASE EVENT DATE: 20230101
